FAERS Safety Report 5734356-4 (Version None)
Quarter: 2008Q2

REPORT INFORMATION
  Report Type: 
  Country: None (occurrence: None)
  Receive Date: 20080508
  Receipt Date: 20080508
  Transmission Date: 20081010
  Serious: Yes (Life-Threatening)
  Sender: FDA-Public Use
  Company Number: None

PATIENT

DRUGS (1)
  1. MORPHINE [Suspect]
     Dosage: 10MG TO 30MG QH IV DRIP
     Route: 041

REACTIONS (1)
  - MEDICATION ERROR [None]
